FAERS Safety Report 6318601-2 (Version None)
Quarter: 2009Q3

REPORT INFORMATION
  Report Type: 
  Country: None (occurrence: None)
  Receive Date: 20090821
  Receipt Date: 20090811
  Transmission Date: 20100115
  Serious: Yes (Hospitalization)
  Sender: FDA-Public Use
  Company Number: US-ELI_LILLY_AND_COMPANY-US200908004104

PATIENT
  Sex: Female
  Weight: 73.469 kg

DRUGS (15)
  1. BYETTA [Suspect]
     Indication: TYPE 2 DIABETES MELLITUS
     Dosage: 5 UG, 2/D
     Route: 058
     Dates: start: 20050101, end: 20050101
  2. BYETTA [Suspect]
     Dosage: 10 UG, 2/D
     Route: 058
     Dates: start: 20050101, end: 20090729
  3. BYETTA [Suspect]
     Dosage: 10 MG, 2/D
     Route: 058
     Dates: start: 20090801
  4. METFORMIN HCL [Concomitant]
     Indication: TYPE 2 DIABETES MELLITUS
     Dosage: 500 MG, DAILY (1/D)
  5. SYNTHROID [Concomitant]
     Indication: THYROID DISORDER
     Dosage: 88 UG, DAILY (1/D)
  6. VITAMIN D [Concomitant]
     Indication: SUPPLEMENTATION THERAPY
     Dosage: 2000 MG, DAILY (1/D)
  7. VITAMIN D [Concomitant]
     Dosage: 50000 MG, WEEKLY (1/W)
     Dates: start: 20080101
  8. XANAX [Concomitant]
     Dosage: 2.5 MG, AS NEEDED
  9. ANTIVERT [Concomitant]
     Indication: VERTIGO
     Dosage: UNK, 3/D
     Dates: start: 20090729
  10. ANTIVERT [Concomitant]
     Dosage: UNK, AS NEEDED
     Dates: end: 20090729
  11. ADVIL LIQUI-GELS [Concomitant]
     Indication: OSTEOARTHRITIS
  12. ASPIRIN [Concomitant]
     Indication: PROPHYLAXIS
     Dosage: 81 MG, DAILY (1/D)
     Dates: start: 20090729
  13. ASPIRIN [Concomitant]
     Dosage: 325 MG, DAILY (1/D)
     Dates: start: 20090101, end: 20090729
  14. ASPIRIN [Concomitant]
     Dosage: 81 MG, DAILY (1/D)
  15. CALCIUM [Concomitant]
     Indication: SUPPLEMENTATION THERAPY

REACTIONS (15)
  - BLOOD CHOLESTEROL INCREASED [None]
  - BLOOD GLUCOSE DECREASED [None]
  - BLOOD GLUCOSE INCREASED [None]
  - BLOOD THYROID STIMULATING HORMONE ABNORMAL [None]
  - FATIGUE [None]
  - HYPERTENSION [None]
  - INCOHERENT [None]
  - MEMORY IMPAIRMENT [None]
  - OFF LABEL USE [None]
  - PALPITATIONS [None]
  - SPEECH DISORDER [None]
  - STRESS [None]
  - TRANSIENT ISCHAEMIC ATTACK [None]
  - URINARY TRACT INFECTION [None]
  - VISUAL IMPAIRMENT [None]
